FAERS Safety Report 23933585 (Version 1)
Quarter: 2024Q2

REPORT INFORMATION
  Report Type: Spontaneous
  Country: US (occurrence: US)
  Receive Date: 20240603
  Receipt Date: 20240603
  Transmission Date: 20240716
  Serious: No
  Sender: FDA-Public Use
  Company Number: US-BAYER-2024A080734

PATIENT
  Sex: Female

DRUGS (1)
  1. MIRALAX [Suspect]
     Active Substance: POLYETHYLENE GLYCOL 3350
     Dosage: EVERY DAY, ONCE IN THE MORNING, ONCE IN THE AFTERNOON
     Route: 048

REACTIONS (3)
  - Incorrect product administration duration [Unknown]
  - Inappropriate schedule of product administration [None]
  - Product solubility abnormal [None]
